FAERS Safety Report 5855830-6 (Version None)
Quarter: 2008Q3

REPORT INFORMATION
  Report Type: 
  Country: None (occurrence: None)
  Receive Date: 20080825
  Receipt Date: 20071003
  Transmission Date: 20090109
  Serious: No
  Sender: FDA-Public Use
  Company Number: A0685955A

PATIENT
  Age: 20 Year
  Sex: Male

DRUGS (2)
  1. MALARONE [Suspect]
     Indication: MALARIA
     Dosage: 1TAB PER DAY
     Route: 048
     Dates: start: 20070201, end: 20070408
  2. NO CONCURRENT MEDICATION [Concomitant]

REACTIONS (4)
  - ANXIETY [None]
  - DIZZINESS [None]
  - PANIC ATTACK [None]
  - VISUAL IMPAIRMENT [None]
